FAERS Safety Report 6812654-0 (Version None)
Quarter: 2010Q3

REPORT INFORMATION
  Report Type: 
  Country: None (occurrence: None)
  Receive Date: 20100701
  Receipt Date: 20100624
  Transmission Date: 20110219
  Serious: Yes (Other)
  Sender: FDA-Public Use
  Company Number: BR-ROCHE-696985

PATIENT
  Sex: Male
  Weight: 51 kg

DRUGS (2)
  1. ROACUTAN [Suspect]
     Indication: ACNE
     Route: 048
     Dates: start: 20090701
  2. ROACUTAN [Suspect]
     Dosage: DOSE REDUCED
     Route: 048
     Dates: end: 20100201

REACTIONS (3)
  - DACTYLITIS [None]
  - NAIL BED BLEEDING [None]
  - PYOGENIC GRANULOMA [None]
